FAERS Safety Report 10055535 (Version 1)
Quarter: 2014Q2

REPORT INFORMATION
  Report Type: Report from Study
  Country: CA (occurrence: CA)
  Receive Date: 20140403
  Receipt Date: 20140403
  Transmission Date: 20141212
  Serious: Yes (Other)
  Sender: FDA-Public Use
  Company Number: CA-ROCHE-1372194

PATIENT
  Sex: 0

DRUGS (1)
  1. ALTEPLASE [Suspect]
     Indication: SUBARACHNOID HAEMORRHAGE
     Dosage: EVERY 12 HOURS
     Route: 065

REACTIONS (2)
  - Cerebral ischaemia [Unknown]
  - Cerebral infarction [Unknown]
